FAERS Safety Report 9312846 (Version 1)
Quarter: 2013Q2

REPORT INFORMATION
  Report Type: Spontaneous
  Country: US (occurrence: US)
  Receive Date: 20130528
  Receipt Date: 20130528
  Transmission Date: 20140414
  Serious: Yes (Hospitalization)
  Sender: FDA-Public Use
  Company Number: US-009507513-1305USA014414

PATIENT
  Age: 61 Year
  Sex: Female
  Weight: 76.64 kg

DRUGS (6)
  1. VICTRELIS [Suspect]
     Dosage: 4 CAPSULES (800 MG) TID
     Route: 048
  2. VITAMINS (UNSPECIFIED) [Concomitant]
     Route: 048
  3. ALEVE [Concomitant]
     Dosage: 220 MG, UNK
     Route: 048
  4. METHADONE HYDROCHLORIDE [Concomitant]
     Dosage: 10 MG, UNK
     Route: 048
  5. NAPROXEN [Concomitant]
     Dosage: 500 MG, UNK
     Route: 048
  6. ADVIL [Suspect]
     Dosage: 200 MG, UNK
     Route: 048

REACTIONS (4)
  - Red blood cell count decreased [Unknown]
  - Pruritus [Unknown]
  - Fatigue [Unknown]
  - Anxiety [Unknown]
